FAERS Safety Report 16498630 (Version 1)
Quarter: 2019Q2

REPORT INFORMATION
  Report Type: Report from Study
  Country: None (occurrence: CO)
  Receive Date: 20190629
  Receipt Date: 20190629
  Transmission Date: 20190711
  Serious: Yes (Hospitalization)
  Sender: FDA-Public Use
  Company Number: CO-ABBVIE-19K-036-2837479-00

PATIENT
  Age: 6 Month
  Sex: Female
  Weight: 5 kg

DRUGS (1)
  1. SYNAGIS [Suspect]
     Active Substance: PALIVIZUMAB
     Indication: PREMATURE BABY
     Route: 030
     Dates: start: 20190207, end: 20190507

REACTIONS (3)
  - Drug ineffective [Unknown]
  - Respiratory syncytial virus infection [Unknown]
  - Heart rate increased [Unknown]

NARRATIVE: CASE EVENT DATE: 20190531
